FAERS Safety Report 7059923-X (Version None)
Quarter: 2010Q4

REPORT INFORMATION
  Report Type: 
  Country: None (occurrence: None)
  Receive Date: 20101025
  Receipt Date: 20101018
  Transmission Date: 20110411
  Serious: Yes (Hospitalization, Disabling)
  Sender: FDA-Public Use
  Company Number: US-B.I. PHARMACEUTICALS,INC./RIDGEFIELD-2010-BP-11397BP

PATIENT
  Age: 83 Year
  Sex: Male

DRUGS (8)
  1. SPIRIVA [Suspect]
     Indication: CHRONIC OBSTRUCTIVE PULMONARY DISEASE
     Dosage: 18 MCG
     Route: 055
     Dates: start: 20070101
  2. INSULIN [Concomitant]
     Indication: DIABETES MELLITUS
  3. COREG [Concomitant]
     Indication: HYPERTENSION
  4. WATER PILL [Concomitant]
     Indication: HYPERTENSION
  5. FLOMAX [Concomitant]
     Indication: PROSTATIC DISORDER
  6. PROAIR HFA [Concomitant]
     Indication: CHRONIC OBSTRUCTIVE PULMONARY DISEASE
  7. ASPIRIN [Concomitant]
     Indication: PROPHYLAXIS
  8. C-PAP MACHINE [Concomitant]
     Indication: SLEEP APNOEA SYNDROME

REACTIONS (2)
  - CEREBROVASCULAR ACCIDENT [None]
  - FEELING ABNORMAL [None]
